FAERS Safety Report 16991105 (Version 1)
Quarter: 2019Q4

REPORT INFORMATION
  Report Type: Spontaneous
  Country: US (occurrence: US)
  Receive Date: 20190920
  Receipt Date: 20190920
  Transmission Date: 20200122
  Serious: Yes (Hospitalization)
  Sender: FDA-Public Use
  Company Number: None

PATIENT
  Age: 69 Year
  Sex: Male

DRUGS (15)
  1. LOMOTIL [Concomitant]
     Active Substance: ATROPINE SULFATE\DIPHENOXYLATE HYDROCHLORIDE
  2. ALPROZLAM [Concomitant]
  3. CEFEROXINE [Concomitant]
  4. LEVOTHYROXINE. [Concomitant]
     Active Substance: LEVOTHYROXINE
  5. PROTONIX [Concomitant]
     Active Substance: PANTOPRAZOLE SODIUM
  6. VALIUM [Concomitant]
     Active Substance: DIAZEPAM
  7. TYLENOL [Concomitant]
     Active Substance: ACETAMINOPHEN
  8. CORZIDE [Concomitant]
     Active Substance: BENDROFLUMETHIAZIDE\NADOLOL
  9. FLOMAX [Concomitant]
     Active Substance: TAMSULOSIN HYDROCHLORIDE
  10. LIBRAX [Concomitant]
     Active Substance: CHLORDIAZEPOXIDE HYDROCHLORIDE\CLIDINIUM BROMIDE
  11. SOMA [Concomitant]
     Active Substance: CARISOPRODOL
  12. WARFARIN [Concomitant]
     Active Substance: WARFARIN
  13. COUMADIN [Concomitant]
     Active Substance: WARFARIN SODIUM
  14. KANPECTATE [Concomitant]
  15. HUMIRA [Suspect]
     Active Substance: ADALIMUMAB
     Indication: CROHN^S DISEASE
     Route: 058
     Dates: start: 20160429

REACTIONS (2)
  - Therapy cessation [None]
  - Hospitalisation [None]
